FAERS Safety Report 9462149 (Version 1)
Quarter: 2013Q3

REPORT INFORMATION
  Report Type: Spontaneous
  Country: US (occurrence: None)
  Receive Date: 20130815
  Receipt Date: 20130815
  Transmission Date: 20140515
  Serious: Yes (Hospitalization)
  Sender: FDA-Public Use
  Company Number: None

PATIENT
  Age: 35 Year
  Sex: Male
  Weight: 120 kg

DRUGS (10)
  1. FLUPHENAZINE [Suspect]
     Indication: SCHIZOAFFECTIVE DISORDER
     Dosage: 20MG QAM PO?CHRONIC
     Route: 048
  2. ARIPIPRAZOLE [Concomitant]
     Dosage: 20MG  BID  PO?CHRONIC
     Route: 048
  3. AMLODIPINE [Concomitant]
  4. ATORVASTATIN [Concomitant]
  5. BENZOTROPINE [Concomitant]
  6. ATENOLOL [Concomitant]
  7. LEVOTHYROXINE [Concomitant]
  8. COLCHICINE [Concomitant]
  9. ATIVAN [Concomitant]
  10. TRAMADOL [Concomitant]

REACTIONS (3)
  - Dystonia [None]
  - Renal failure acute [None]
  - Tenosynovitis [None]
